FAERS Safety Report 7769066-5 (Version None)
Quarter: 2011Q3

REPORT INFORMATION
  Report Type: 
  Country: None (occurrence: None)
  Receive Date: 20110922
  Receipt Date: 20110328
  Transmission Date: 20111222
  Serious: Yes (Other)
  Sender: FDA-Public Use
  Company Number: US-ASTRAZENECA-2011SE17769

PATIENT
  Sex: Male

DRUGS (6)
  1. CITALOPRAM HYDROBROMIDE [Concomitant]
     Indication: DEPRESSION
     Route: 048
     Dates: start: 20100701
  2. IBUPROFEN [Concomitant]
     Indication: PAIN
     Route: 048
     Dates: start: 20100701
  3. SEROQUEL [Suspect]
     Indication: AFFECTIVE DISORDER
     Dosage: 50-400 MG
     Route: 048
     Dates: start: 20061212
  4. SERTRALINE HYDROCHLORIDE [Concomitant]
     Indication: AFFECTIVE DISORDER
     Dosage: TAKE 1/2 TAB EVERY MORNING FOR 3 DAYS AND THEN 1 TAB EVERY MORNING.
     Route: 048
     Dates: start: 20061212
  5. LISINOPRIL [Concomitant]
     Indication: HYPERTENSION
     Route: 048
     Dates: start: 20100701
  6. IBUPROFEN [Concomitant]
     Indication: INFLAMMATION
     Route: 048
     Dates: start: 20100701

REACTIONS (7)
  - ERECTILE DYSFUNCTION [None]
  - DIABETES MELLITUS [None]
  - DIABETES MELLITUS INADEQUATE CONTROL [None]
  - HYPERLIPIDAEMIA [None]
  - RECTAL POLYP [None]
  - HYPERTENSION [None]
  - MUSCULOSKELETAL PAIN [None]
